FAERS Safety Report 4300914-7 (Version None)
Quarter: 2004Q1

REPORT INFORMATION
  Report Type: 
  Country: None (occurrence: None)
  Receive Date: 20040218
  Receipt Date: 20031125
  Transmission Date: 20041129
  Serious: No
  Sender: FDA-Public Use
  Company Number: 2001-05-0979

PATIENT
  Age: 79 Year
  Sex: Male
  Weight: 52.6173 kg

DRUGS (2)
  1. PEG-INTRON [Suspect]
     Indication: HEPATITIS C
     Dosage: 50 MCG QWK SUBCUTANEOUS
     Route: 058
     Dates: start: 20010327, end: 20010508
  2. MULTI-VITAMINS [Concomitant]

REACTIONS (3)
  - ALANINE AMINOTRANSFERASE INCREASED [None]
  - ASPARTATE AMINOTRANSFERASE INCREASED [None]
  - HEPATITIS CHRONIC ACTIVE [None]
